FAERS Safety Report 6349310-1 (Version None)
Quarter: 2009Q3

REPORT INFORMATION
  Report Type: 
  Country: None (occurrence: None)
  Receive Date: 20090911
  Receipt Date: 20090903
  Transmission Date: 20100115
  Serious: Yes (Other)
  Sender: FDA-Public Use
  Company Number: B0590448A

PATIENT
  Age: 42 Year
  Sex: Male

DRUGS (3)
  1. BECONASE [Suspect]
     Route: 045
  2. ACIMAX [Concomitant]
     Dosage: 10MG ALTERNATE DAYS
     Route: 065
     Dates: start: 20000101
  3. PROPULSID [Concomitant]
     Route: 065

REACTIONS (3)
  - INFERTILITY [None]
  - SPERMATOZOA MORPHOLOGY ABNORMAL [None]
  - SPERMATOZOA PROGRESSIVE MOTILITY ABNORMAL [None]
